FAERS Safety Report 5644980-5 (Version None)
Quarter: 2008Q1

REPORT INFORMATION
  Report Type: 
  Country: None (occurrence: None)
  Receive Date: 20080229
  Receipt Date: 20071214
  Transmission Date: 20080703
  Serious: No
  Sender: FDA-Public Use
  Company Number: A0699046A

PATIENT
  Age: 65 Year
  Sex: Male

DRUGS (12)
  1. VALTREX [Suspect]
     Indication: NEUROPATHY PERIPHERAL
     Dosage: 1000MG PER DAY
     Route: 048
     Dates: start: 20000101
  2. LYRICA [Concomitant]
  3. GABAPENTIN [Concomitant]
  4. PRAVASTATIN [Concomitant]
  5. FISH OIL [Concomitant]
  6. FLAX SEED OIL [Concomitant]
  7. MSM [Concomitant]
  8. GLUCOSAMINE [Concomitant]
  9. CALCIUM [Concomitant]
  10. MULTI-VITAMIN [Concomitant]
  11. BIOTIN [Concomitant]
  12. ASPARIN [Concomitant]

REACTIONS (1)
  - DRUG INEFFECTIVE [None]
